FAERS Safety Report 5955971-9 (Version None)
Quarter: 2008Q4

REPORT INFORMATION
  Report Type: 
  Country: None (occurrence: None)
  Receive Date: 20081112
  Receipt Date: 20081029
  Transmission Date: 20090506
  Serious: Yes (Hospitalization)
  Sender: FDA-Public Use
  Company Number: DSM-2008-00978

PATIENT
  Age: 70 Year
  Sex: Female

DRUGS (6)
  1. ALTEIS DUO (HYDROCHLOROTHIAZIDE, OLMESARTAN MEDOXOMIL) (TABLET) (HYDRO [Suspect]
     Indication: DRUG USE FOR UNKNOWN INDICATION
     Dosage: 1 IN 1 D, ORAL
     Route: 048
  2. GLUCOPHAGE [Suspect]
     Indication: INSULIN-REQUIRING TYPE 2 DIABETES MELLITUS
     Dosage: 3 GM, ORAL
     Route: 048
  3. LASIX [Suspect]
     Indication: DRUG USE FOR UNKNOWN INDICATION
     Dosage: 60 MG, ORAL
     Route: 048
  4. ULTRAVIST (PHARMACY BULK) [Suspect]
     Indication: SCAN WITH CONTRAST
     Dosage: PARENTERAL
     Route: 051
     Dates: start: 20080918
  5. PREVISCAN (FLUINDIONE (FLUINDIONE) [Concomitant]
  6. LANTUS (INSULIN GLARGINE) (INSULIN GLARGINE) [Concomitant]

REACTIONS (5)
  - ANURIA [None]
  - HAEMODIALYSIS [None]
  - HYPOGLYCAEMIA [None]
  - LACTIC ACIDOSIS [None]
  - RENAL FAILURE ACUTE [None]
